FAERS Safety Report 14706672 (Version 1)
Quarter: 2018Q2

REPORT INFORMATION
  Report Type: Spontaneous
  Country: FR (occurrence: FR)
  Receive Date: 20180402
  Receipt Date: 20180402
  Transmission Date: 20180711
  Serious: Yes (Hospitalization)
  Sender: FDA-Public Use
  Company Number: FR-MYLANLABS-2018M1019740

PATIENT
  Age: 87 Year
  Sex: Female

DRUGS (1)
  1. QUETIAPINE MYLAN PHARMA LP 300 MG, COMPRIM? ? LIB?RATION PROLONG?E [Suspect]
     Active Substance: QUETIAPINE FUMARATE
     Indication: SENILE DEMENTIA
     Dosage: UNK
     Route: 065
     Dates: start: 201802

REACTIONS (5)
  - Fall [Unknown]
  - Incoherent [Unknown]
  - Confusional state [Unknown]
  - Listless [Unknown]
  - Diplegia [Unknown]

NARRATIVE: CASE EVENT DATE: 201802
